FAERS Safety Report 8757847 (Version 3)
Quarter: 2017Q4

REPORT INFORMATION
  Report Type: Report from Study
  Country: JP (occurrence: JP)
  Receive Date: 20120828
  Receipt Date: 20171204
  Transmission Date: 20180321
  Serious: Yes (Death)
  Sender: FDA-Public Use
  Company Number: JP-ROCHE-GNE306612

PATIENT

DRUGS (2)
  1. ALTEPLASE. [Suspect]
     Active Substance: ALTEPLASE
     Indication: ISCHAEMIC STROKE
     Dosage: 10% OF 0.6MG/KG WAS GIVEN AS A BOLUS WITHIN 3 H OF STROKE ONSET
     Route: 040
  2. ALTEPLASE. [Suspect]
     Active Substance: ALTEPLASE
     Route: 041

REACTIONS (1)
  - Death [Fatal]
